FAERS Safety Report 16211123 (Version 4)
Quarter: 2019Q2

REPORT INFORMATION
  Report Type: Spontaneous
  Country: GB (occurrence: GB)
  Receive Date: 20190418
  Receipt Date: 20190517
  Transmission Date: 20190711
  Serious: Yes (Life-Threatening, Hospitalization, Other)
  Sender: FDA-Public Use
  Company Number: GB-AUROBINDO-AUR-APL-2019-020055

PATIENT

DRUGS (7)
  1. FLUCLOXACILLIN [Suspect]
     Active Substance: FLUCLOXACILLIN
     Dosage: UNK
     Route: 042
  2. IMATINIB. [Suspect]
     Active Substance: IMATINIB MESYLATE
     Indication: CHRONIC MYELOID LEUKAEMIA
     Dosage: 400 MILLIGRAM, ONCE A DAY
     Route: 065
  3. TACROLIMUS. [Suspect]
     Active Substance: TACROLIMUS
     Indication: IMMUNOSUPPRESSION
     Dosage: UNK
     Route: 065
  4. METRONIDAZOLE. [Suspect]
     Active Substance: METRONIDAZOLE
     Indication: POSTOPERATIVE WOUND INFECTION
     Dosage: UNK
     Route: 048
  5. FLUCLOXACILLIN [Suspect]
     Active Substance: FLUCLOXACILLIN
     Indication: WOUND INFECTION
     Dosage: UNK
     Route: 048
  6. METRONIDAZOLE. [Suspect]
     Active Substance: METRONIDAZOLE
     Indication: WOUND INFECTION
     Dosage: UNK
     Route: 042
  7. IMATINIB FILM-COATED TABLET [Suspect]
     Active Substance: IMATINIB MESYLATE
     Indication: CHRONIC MYELOID LEUKAEMIA
     Dosage: 400 MILLIGRAM, ONCE A DAY
     Route: 065

REACTIONS (11)
  - Hepatic failure [Unknown]
  - Exposure during pregnancy [Unknown]
  - Postoperative wound infection [Unknown]
  - Hepatotoxicity [Recovered/Resolved]
  - Acute hepatic failure [Recovered/Resolved]
  - Jaundice [Recovered/Resolved]
  - Philadelphia chromosome positive [Unknown]
  - Vomiting [Recovered/Resolved]
  - Polyhydramnios [Unknown]
  - Normal newborn [Unknown]
  - Postmature baby [Unknown]
